FAERS Safety Report 13485624 (Version 1)
Quarter: 2017Q2

REPORT INFORMATION
  Report Type: Spontaneous
  Country: GB (occurrence: GB)
  Receive Date: 20170426
  Receipt Date: 20170426
  Transmission Date: 20170830
  Serious: Yes (Life-Threatening, Hospitalization)
  Sender: FDA-Public Use
  Company Number: GB-ALLERGAN-1715812US

PATIENT
  Age: 73 Year
  Sex: Female
  Weight: 69.8 kg

DRUGS (2)
  1. CALCIUM [Concomitant]
     Active Substance: CALCIUM
     Indication: PRODUCT USED FOR UNKNOWN INDICATION
  2. RISEDRONATE SODIUM - BP [Suspect]
     Active Substance: RISEDRONATE SODIUM
     Indication: BONE DISORDER
     Dosage: 1 DF, Q WEEK
     Route: 048
     Dates: start: 20161031, end: 20161101

REACTIONS (6)
  - Malaise [Recovered/Resolved]
  - Presyncope [Recovered/Resolved]
  - Vulvovaginal swelling [Recovered/Resolved]
  - Vulvovaginal pruritus [Recovered/Resolved]
  - Dry skin [Recovered/Resolved]
  - Rash pruritic [Recovered/Resolved]
